FAERS Safety Report 9865292 (Version 2)
Quarter: 2014Q1

REPORT INFORMATION
  Report Type: Spontaneous
  Country: US (occurrence: US)
  Receive Date: 20140203
  Receipt Date: 20140203
  Transmission Date: 20141002
  Serious: No
  Sender: FDA-Public Use
  Company Number: US-ALLERGAN-1301181US

PATIENT
  Sex: Female

DRUGS (6)
  1. RESTASIS [Suspect]
     Indication: DRY EYE
     Dosage: 2 GTT, BID
     Route: 047
     Dates: start: 201207
  2. SYNTHROID [Concomitant]
     Indication: HYPOTHYROIDISM
     Dosage: 0.75 MG, QD
     Route: 048
     Dates: start: 1995
  3. CITALOPRAM [Concomitant]
     Indication: PRODUCT USED FOR UNKNOWN INDICATION
     Dosage: 20 MG, QHS
     Route: 048
  4. LODINE [Concomitant]
     Indication: INTERVERTEBRAL DISC DEGENERATION
     Dosage: 500 MG, PRN
     Route: 048
  5. DAILY VITAMINS [Concomitant]
     Indication: SUPPLEMENTATION THERAPY
     Dosage: UNK
  6. STERIOD INJECTIONS [Concomitant]
     Indication: INTERVERTEBRAL DISC DEGENERATION
     Dosage: UNK, PRN
     Dates: start: 201212

REACTIONS (1)
  - Drug ineffective [Unknown]
